FAERS Safety Report 21700703 (Version 1)
Quarter: 2022Q4

REPORT INFORMATION
  Report Type: Report from Study
  Country: IL (occurrence: IL)
  Receive Date: 20221208
  Receipt Date: 20221208
  Transmission Date: 20230113
  Serious: Yes (Hospitalization, Other)
  Sender: FDA-Public Use
  Company Number: IL-TAKEDA-IL201811281

PATIENT
  Age: 96 Year
  Sex: Male

DRUGS (25)
  1. VELAGLUCERASE ALFA [Suspect]
     Active Substance: VELAGLUCERASE ALFA
     Indication: Gaucher^s disease
     Dosage: 30 INTERNATIONAL UNIT/KILOGRAM, Q2WEEKS
     Route: 065
     Dates: start: 20110421, end: 20111109
  2. VELAGLUCERASE ALFA [Suspect]
     Active Substance: VELAGLUCERASE ALFA
     Dosage: 15 INTERNATIONAL UNIT/KILOGRAM, Q2WEEKS
     Route: 065
     Dates: start: 20091124, end: 20110401
  3. VELAGLUCERASE ALFA [Suspect]
     Active Substance: VELAGLUCERASE ALFA
     Dosage: 60 INTERNATIONAL UNIT/KILOGRAM, Q2WEEKS
     Route: 065
     Dates: start: 20111115
  4. LOSARTAN POTASSIUM [Concomitant]
     Active Substance: LOSARTAN POTASSIUM
     Indication: Cholangitis
  5. DISEPTYL FORTE [Concomitant]
     Indication: Antibiotic prophylaxis
  6. HYZAAR [Concomitant]
     Active Substance: HYDROCHLOROTHIAZIDE\LOSARTAN POTASSIUM
     Indication: Hypertension
     Dosage: UNK
     Route: 048
     Dates: start: 2010
  7. SELEGILINE HYDROCHLORIDE [Concomitant]
     Active Substance: SELEGILINE HYDROCHLORIDE
     Indication: Tremor
     Dosage: UNK UNK, QD
     Route: 065
     Dates: start: 2001
  8. CHLORPHENIRAMINE MALEATE [Concomitant]
     Active Substance: CHLORPHENIRAMINE MALEATE
     Indication: Cholangitis
     Dosage: 2 MILLIGRAM, BID
     Route: 048
     Dates: start: 20140116, end: 201402
  9. METHYLPREDNISOLONE [Concomitant]
     Active Substance: METHYLPREDNISOLONE
     Indication: Cholangitis
     Dosage: 40 MILLIGRAM, QD
     Route: 042
     Dates: start: 20140116, end: 201402
  10. CEFTRIAXONE [Concomitant]
     Active Substance: CEFTRIAXONE
     Indication: Bacteraemia
     Dosage: UNK UNK, QD
     Route: 042
     Dates: start: 20140730, end: 20140801
  11. CEFUROXIME [Concomitant]
     Active Substance: CEFUROXIME
     Indication: Pneumonia klebsiella
     Dosage: 500 MILLIGRAM, BID
     Route: 048
     Dates: start: 20140801, end: 20140805
  12. ADRENALIN [Concomitant]
     Active Substance: EPINEPHRINE
     Indication: Upper gastrointestinal haemorrhage
     Dosage: UNK UNK, QD
     Route: 054
     Dates: start: 20140819, end: 20140819
  13. CEFAZOLIN [Concomitant]
     Active Substance: CEFAZOLIN
     Indication: Pneumonia klebsiella
     Dosage: UNK
     Route: 042
     Dates: start: 20150430, end: 20150505
  14. Ceforal [Concomitant]
     Indication: Pneumonia klebsiella
     Dosage: 500 MILLIGRAM, TID
     Route: 048
     Dates: start: 20150505, end: 20150510
  15. DISEPTYL FORTE [Concomitant]
     Indication: Antibiotic prophylaxis
     Dosage: UNK UNK, TID
     Route: 048
     Dates: start: 201509
  16. LOSARTAN POTASSIUM [Concomitant]
     Active Substance: LOSARTAN POTASSIUM
     Indication: Cholangitis
     Dosage: 50 MILLIGRAM, QD
     Route: 048
     Dates: start: 20160117
  17. ERTAPENEM [Concomitant]
     Active Substance: ERTAPENEM
     Indication: Urosepsis
     Dosage: UNK
     Route: 042
     Dates: start: 20160503, end: 20160517
  18. Fusid [Concomitant]
     Indication: Hydronephrosis
     Dosage: 40 MILLIGRAM, QOD
     Route: 048
     Dates: start: 20160517, end: 201606
  19. LANSOPRAZOLE [Concomitant]
     Active Substance: LANSOPRAZOLE
     Dosage: 30 MILLIGRAM, QD
     Route: 048
     Dates: start: 2017
  20. LOSARTAN [Concomitant]
     Active Substance: LOSARTAN
     Dosage: 1 DOSAGE FORM, QD
     Route: 065
     Dates: start: 2017
  21. TRIPTORELIN [Concomitant]
     Active Substance: TRIPTORELIN
     Dosage: 22.5 MILLIGRAM, Q3MONTHS
     Route: 050
     Dates: start: 2017
  22. DABIGATRAN ETEXILATE MESYLATE [Concomitant]
     Active Substance: DABIGATRAN ETEXILATE MESYLATE
     Dosage: 110 MILLIGRAM, BID
     Route: 048
     Dates: start: 201705, end: 201706
  23. ATENOLOL [Concomitant]
     Active Substance: ATENOLOL
     Dosage: 50 MILLIGRAM, BID
     Route: 048
     Dates: start: 201705, end: 201706
  24. AMIODARONE [Concomitant]
     Active Substance: AMIODARONE
     Indication: Atrial flutter
     Dosage: 400 MILLIGRAM, BID
     Route: 048
     Dates: start: 20170624, end: 2018
  25. BICALUTAMIDE [Concomitant]
     Active Substance: BICALUTAMIDE
     Indication: Prostate cancer
     Dosage: 150 MILLIGRAM, QD
     Route: 065
     Dates: start: 201804

REACTIONS (1)
  - Atrial fibrillation [Recovered/Resolved]

NARRATIVE: CASE EVENT DATE: 20170624
